FAERS Safety Report 18216130 (Version 1)
Quarter: 2020Q3

REPORT INFORMATION
  Report Type: Spontaneous
  Country: GB (occurrence: GB)
  Receive Date: 20200901
  Receipt Date: 20200901
  Transmission Date: 20201103
  Serious: Yes (Other)
  Sender: FDA-Public Use
  Company Number: GB-009507513-2008GBR014401

PATIENT
  Age: 41 Year
  Sex: Female
  Weight: 93 kg

DRUGS (9)
  1. ALBUTEROL. [Concomitant]
     Active Substance: ALBUTEROL
     Dosage: PUFFS, UP TO 4 TIMES A DAY, AS NECESSARY
     Dates: start: 20190506
  2. BECLOMETHASONE DIPROPIONATE [Concomitant]
     Active Substance: BECLOMETHASONE DIPROPIONATE
     Indication: SEASONAL ALLERGY
     Dosage: 8 DOSAGE FORM, QD; PUFFS, 2 IN EACH NOSTRIL
     Dates: start: 20200415
  3. BUDESONIDE. [Concomitant]
     Active Substance: BUDESONIDE
     Dosage: 2 PUFFS TWICE A DAY PLUS AS NECESSARY
     Dates: start: 20190506
  4. ACETAMINOPHEN. [Concomitant]
     Active Substance: ACETAMINOPHEN
     Dosage: 1?2 UP TO FOUR TIMES A DAY, MAXIMUM 8/DAY; AS NECESSARY
     Dates: start: 20190506
  5. AMITRIPTYLINE HYDROCHLORIDE. [Concomitant]
     Active Substance: AMITRIPTYLINE HYDROCHLORIDE
     Dosage: 1 DOSAGE FORM, QD
     Dates: start: 20190506
  6. CETIRIZINE HYDROCHLORIDE. [Concomitant]
     Active Substance: CETIRIZINE HYDROCHLORIDE
     Dosage: 1 DOSAGE FORM, QD
     Dates: start: 20190506
  7. FLUOXETINE [Concomitant]
     Active Substance: FLUOXETINE HYDROCHLORIDE
     Dosage: 10 MILLILITER, QD
     Dates: start: 20190506
  8. MONTELUKAST SODIUM. [Suspect]
     Active Substance: MONTELUKAST SODIUM
     Dosage: 4 MILLIGRAM, QD; NIGHT, SUGAR FREE
     Dates: start: 20200729
  9. PREDNISOLONE. [Concomitant]
     Active Substance: PREDNISOLONE
     Dosage: 6 DOSAGE FORM, QD; FOR 5 DAYS.
     Dates: start: 20200803

REACTIONS (2)
  - Illness [Recovering/Resolving]
  - Abdominal pain upper [Unknown]

NARRATIVE: CASE EVENT DATE: 20200803
